FAERS Safety Report 24284914 (Version 1)
Quarter: 2024Q3

REPORT INFORMATION
  Report Type: Spontaneous
  Country: US (occurrence: None)
  Receive Date: 20240831
  Receipt Date: 20240831
  Transmission Date: 20241017
  Serious: Yes (Hospitalization)
  Sender: Public
  Company Number: None

PATIENT
  Age: 2 Year
  Sex: Female
  Weight: 11.9 kg

DRUGS (2)
  1. CYCLOPHOSPHAMIDE [Suspect]
     Active Substance: CYCLOPHOSPHAMIDE
     Dates: end: 20240823
  2. TOPOTECAN [Suspect]
     Active Substance: TOPOTECAN HYDROCHLORIDE
     Dates: end: 20240824

REACTIONS (18)
  - Pleural effusion [None]
  - Tachycardia [None]
  - Hypertension [None]
  - Abdominal distension [None]
  - Hypoalbuminaemia [None]
  - Hypotonia [None]
  - Neuroblastoma [None]
  - Retroperitoneal mass [None]
  - Metastases to lymph nodes [None]
  - Adrenal mass [None]
  - Duane^s syndrome [None]
  - Strabismus [None]
  - Craniosynostosis [None]
  - Chromosomal deletion [None]
  - Eustachian tube dysfunction [None]
  - Retinitis pigmentosa [None]
  - Congenital musculoskeletal disorder of skull [None]
  - Paralysis [None]

NARRATIVE: CASE EVENT DATE: 20240823
